FAERS Safety Report 21582565 (Version 2)
Quarter: 2022Q4

REPORT INFORMATION
  Report Type: Spontaneous
  Country: US (occurrence: US)
  Receive Date: 20221111
  Receipt Date: 20221201
  Transmission Date: 20230113
  Serious: Yes (Life-Threatening, Hospitalization)
  Sender: FDA-Public Use
  Company Number: US-TEVA-2022-US-2823537

PATIENT
  Age: 53 Year
  Sex: Female

DRUGS (6)
  1. SOTALOL [Suspect]
     Active Substance: SOTALOL
     Indication: Drug therapy
     Route: 065
  2. NOREPINEPHRINE [Suspect]
     Active Substance: NOREPINEPHRINE
     Indication: Toxicity to various agents
     Route: 065
  3. MAGNESIUM SULFATE [Suspect]
     Active Substance: MAGNESIUM SULFATE
     Indication: Toxicity to various agents
     Route: 065
  4. ISOPROTERENOL HYDROCHLORIDE [Suspect]
     Active Substance: ISOPROTERENOL HYDROCHLORIDE
     Indication: Toxicity to various agents
     Dosage: 28800 MICROGRAM DAILY; UPTITRATION TO 20MICROG/MIN
     Route: 065
  5. INSULIN NOS [Suspect]
     Active Substance: INSULIN NOS
     Indication: Toxicity to various agents
     Dosage: BOLUS 60 UNITS
     Route: 065
  6. INSULIN NOS [Suspect]
     Active Substance: INSULIN NOS
     Dosage: 12 MG/KG DAILY; CONTINUOUS INFUSION
     Route: 050

REACTIONS (8)
  - Hypotension [Recovering/Resolving]
  - Sinus bradycardia [Recovering/Resolving]
  - Electrocardiogram QT prolonged [Recovered/Resolved]
  - Ventricular tachycardia [Recovering/Resolving]
  - Toxicity to various agents [Recovering/Resolving]
  - Drug ineffective [Unknown]
  - Intentional overdose [Recovering/Resolving]
  - Intentional product misuse [Recovering/Resolving]
